FAERS Safety Report 8044331-5 (Version None)
Quarter: 2012Q1

REPORT INFORMATION
  Report Type: 
  Country: None (occurrence: None)
  Receive Date: 20120113
  Receipt Date: 20120111
  Transmission Date: 20120608
  Serious: Yes (Life-Threatening)
  Sender: FDA-Public Use
  Company Number: FI-BAYER-2012-003132

PATIENT
  Age: 88 Year
  Sex: Female

DRUGS (17)
  1. IMOVANE [Concomitant]
     Dosage: 7.5 MG, QD
  2. LIPITOR [Concomitant]
     Dosage: 10 MG, QD
  3. METOPROLOL TARTRATE [Concomitant]
     Dosage: 1 MG/ML, UNK
  4. DIGOXIN [Concomitant]
     Dosage: 0.125 MG, QD
  5. GEFILUS [Concomitant]
     Dosage: UNK
  6. NALOXONE HCL W/ OXYCODONE HCL [Concomitant]
     Dosage: 20 MG, BID
  7. ACETAMINOPHEN [Concomitant]
     Dosage: 1 G, TID
  8. KALCIPOS-D [Concomitant]
     Dosage: 500 MG, BID
  9. AVELOX [Suspect]
     Indication: INTERVERTEBRAL DISCITIS
     Dosage: 400 MG, UNK
     Route: 048
     Dates: start: 20111221, end: 20111229
  10. WARFARIN SODIUM [Concomitant]
     Dosage: 3 MG, UNK
  11. OXAZEPAM [Concomitant]
     Dosage: DAILY DOSE 7.5 MG
  12. FURESIS [Concomitant]
     Dosage: 20 MG, BID
  13. NITROGLYCERIN [Concomitant]
     Dosage: 0.5 MG, PRN
  14. POTASSIUM CHLORIDE [Concomitant]
     Dosage: 1 G, TID
  15. BISOPROLOL FUMARATE [Concomitant]
     Dosage: 5 MG, BID
  16. OMEPRAZOL RATIOPHA [Concomitant]
     Dosage: 20 MG, QD
  17. MALTOFER [Concomitant]
     Dosage: 50 MG/ML, BID

REACTIONS (1)
  - LEUKOPENIA [None]
